FAERS Safety Report 8942391 (Version 3)
Quarter: 2013Q1

REPORT INFORMATION
  Report Type: Spontaneous
  Country: FR (occurrence: FR)
  Receive Date: 20121204
  Receipt Date: 20130102
  Transmission Date: 20140127
  Serious: Yes (Hospitalization, Other)
  Sender: FDA-Public Use
  Company Number: FR-JNJFOC-20121113064

PATIENT
  Age: 26 None
  Sex: Female
  Weight: 45.2 kg

DRUGS (18)
  1. REMICADE [Suspect]
     Indication: CROHN^S DISEASE
     Route: 042
     Dates: start: 20120207
  2. REMICADE [Suspect]
     Indication: CROHN^S DISEASE
     Route: 042
     Dates: start: 20120315
  3. REMICADE [Suspect]
     Indication: CROHN^S DISEASE
     Route: 042
     Dates: start: 20120113
  4. REMICADE [Suspect]
     Indication: CROHN^S DISEASE
     Route: 042
     Dates: start: 200701
  5. REMICADE [Suspect]
     Indication: CROHN^S DISEASE
     Dosage: 6TH INJECTION
     Route: 042
     Dates: start: 20060405
  6. REMICADE [Suspect]
     Indication: CROHN^S DISEASE
     Dosage: 5TH INJECTION
     Route: 042
     Dates: start: 20060222
  7. REMICADE [Suspect]
     Indication: CROHN^S DISEASE
     Dosage: 4TH INJECTION
     Route: 042
     Dates: start: 20060112
  8. REMICADE [Suspect]
     Indication: CROHN^S DISEASE
     Dosage: 3RD INJECTION
     Route: 042
     Dates: start: 20051117
  9. REMICADE [Suspect]
     Indication: CROHN^S DISEASE
     Dosage: 2ND INJECTION
     Route: 042
     Dates: start: 20050923
  10. REMICADE [Suspect]
     Indication: CROHN^S DISEASE
     Dosage: 1ST INJECTION
     Route: 042
     Dates: start: 20050729
  11. REMICADE [Suspect]
     Indication: CROHN^S DISEASE
     Route: 042
     Dates: start: 2003
  12. METHOTREXATE [Suspect]
     Indication: PRODUCT USED FOR UNKNOWN INDICATION
     Route: 065
     Dates: start: 20120113
  13. HUMIRA [Suspect]
     Indication: PRODUCT USED FOR UNKNOWN INDICATION
     Route: 065
  14. DESOBEL [Concomitant]
     Route: 065
     Dates: start: 2006
  15. IMUREL [Concomitant]
     Indication: CROHN^S DISEASE
     Route: 065
     Dates: start: 2000
  16. IMUREL [Concomitant]
     Indication: CROHN^S DISEASE
     Route: 065
     Dates: start: 200507, end: 2008
  17. IMUREL [Concomitant]
     Indication: CROHN^S DISEASE
     Route: 065
     Dates: start: 200505, end: 20070913
  18. SPECIAFOLDINE [Concomitant]
     Route: 065
     Dates: start: 201201

REACTIONS (10)
  - Ileus [Unknown]
  - Ileal stenosis [Unknown]
  - Drug effect decreased [Unknown]
  - Folliculitis [Unknown]
  - Cervical dysplasia [Unknown]
  - Staphylococcal skin infection [Unknown]
  - Eczema [Unknown]
  - Cheilitis granulomatosa [Unknown]
  - Abdominal abscess [Unknown]
  - Enterocutaneous fistula [Unknown]
